FAERS Safety Report 4523289-7 (Version None)
Quarter: 2004Q4

REPORT INFORMATION
  Report Type: 
  Country: None (occurrence: None)
  Receive Date: 20041210
  Receipt Date: 20041201
  Transmission Date: 20050328
  Serious: Yes (Other)
  Sender: FDA-Public Use
  Company Number: US-JNJFOC-20040805688

PATIENT
  Age: 39 Year
  Sex: Female
  Weight: 103.87 kg

DRUGS (7)
  1. REMICADE [Suspect]
     Indication: RHEUMATOID ARTHRITIS
     Dosage: TOTAL NUMBER OF INFUSIONS= 11
     Route: 042
  2. METHOTREXATE [Concomitant]
  3. PLAQUENIL [Concomitant]
  4. FOLIC ACID [Concomitant]
  5. FLONASE [Concomitant]
  6. BEXTRA [Concomitant]
  7. ZANTAC [Concomitant]

REACTIONS (4)
  - ABDOMINAL DISTENSION [None]
  - ASCITES [None]
  - DISSEMINATED TUBERCULOSIS [None]
  - PLEURAL EFFUSION [None]
